APPROVED DRUG PRODUCT: UNASYN
Active Ingredient: AMPICILLIN SODIUM; SULBACTAM SODIUM
Strength: EQ 500MG BASE/VIAL;EQ 250MG BASE/VIAL
Dosage Form/Route: INJECTABLE;INJECTION
Application: N050608 | Product #003
Applicant: PFIZER INC
Approved: Dec 31, 1986 | RLD: No | RS: No | Type: DISCN